FAERS Safety Report 15949635 (Version 1)
Quarter: 2019Q1

REPORT INFORMATION
  Report Type: Report from Study
  Country: NL (occurrence: NL)
  Receive Date: 20190211
  Receipt Date: 20190211
  Transmission Date: 20190417
  Serious: Yes (Hospitalization)
  Sender: FDA-Public Use
  Company Number: NL-UCBSA-2019004680

PATIENT
  Age: 35 Year
  Sex: Female

DRUGS (3)
  1. SULFASALAZINE. [Concomitant]
     Active Substance: SULFASALAZINE
     Indication: PSORIATIC ARTHROPATHY
     Dosage: 1000 MG, 2X/DAY (BID)
     Route: 048
  2. CERTOLIZUMAB PEGOL [Suspect]
     Active Substance: CERTOLIZUMAB PEGOL
     Indication: PSORIATIC ARTHROPATHY
     Dosage: 200 MG, EV 2 WEEKS(QOW)
     Route: 058
     Dates: start: 201701
  3. HYDROXYCHLOROQUINE [Concomitant]
     Active Substance: HYDROXYCHLOROQUINE
     Indication: PSORIATIC ARTHROPATHY
     Dosage: 200 MG, ONCE DAILY (QD)
     Route: 048

REACTIONS (2)
  - Pneumonia influenzal [Recovering/Resolving]
  - Pregnancy [Unknown]

NARRATIVE: CASE EVENT DATE: 201901
